FAERS Safety Report 24108500 (Version 1)
Quarter: 2024Q3

REPORT INFORMATION
  Report Type: Spontaneous
  Country: US (occurrence: US)
  Receive Date: 20240718
  Receipt Date: 20240718
  Transmission Date: 20241017
  Serious: No
  Sender: TARO
  Company Number: US-TARO PHARMACEUTICALS USA INC.-2023TAR00867

PATIENT

DRUGS (2)
  1. BETAMETHASONE DIPROPIONATE\CLOTRIMAZOLE [Suspect]
     Active Substance: BETAMETHASONE DIPROPIONATE\CLOTRIMAZOLE
     Indication: Atrophic vulvovaginitis
     Dosage: UNK, A LITTLE BITTY BIT, MORNING AND EVENING FOR 2 WEEKS, VAGINALLY OUTSIDE
     Route: 067
     Dates: start: 20230804
  2. Primerin cream [Concomitant]
     Indication: Polyp
     Dosage: UNK, 3/WEEK
     Route: 065

REACTIONS (1)
  - Burning sensation [Not Recovered/Not Resolved]
